FAERS Safety Report 18153987 (Version 2)
Quarter: 2022Q2

REPORT INFORMATION
  Report Type: Other
  Country: CA (occurrence: CA)
  Receive Date: 20200816
  Receipt Date: 20220629
  Transmission Date: 20220721
  Serious: Yes (Other)
  Sender: FDA-Public Use
  Company Number: CA-APOTEX-2020AP015636

PATIENT

DRUGS (3)
  1. OMEPRAZOLE [Suspect]
     Active Substance: OMEPRAZOLE
     Indication: Product used for unknown indication
     Dosage: UNK
     Route: 048
  2. PREVACID [Suspect]
     Active Substance: LANSOPRAZOLE
     Indication: Gastric disorder
     Dosage: 10 MILLIGRAM
     Route: 048
  3. PREVACID [Suspect]
     Active Substance: LANSOPRAZOLE
     Indication: Abdominal discomfort
     Dosage: UNK
     Route: 065

REACTIONS (4)
  - Gastric cancer [Not Recovered/Not Resolved]
  - Nephrocalcinosis [Not Recovered/Not Resolved]
  - Renal pain [Not Recovered/Not Resolved]
  - Blood urine present [Not Recovered/Not Resolved]
